FAERS Safety Report 20564538 (Version 3)
Quarter: 2022Q2

REPORT INFORMATION
  Report Type: Spontaneous
  Country: US (occurrence: US)
  Receive Date: 20220308
  Receipt Date: 20220407
  Transmission Date: 20220721
  Serious: Yes (Other)
  Sender: FDA-Public Use
  Company Number: US-HORIZON THERAPEUTICS-HZN-2022-001639

PATIENT

DRUGS (2)
  1. TEPEZZA [Suspect]
     Active Substance: TEPROTUMUMAB-TRBW
     Indication: Endocrine ophthalmopathy
     Dosage: 1ST INFUSION
     Route: 042
     Dates: start: 20211216
  2. TEPEZZA [Suspect]
     Active Substance: TEPROTUMUMAB-TRBW
     Dosage: UNK
     Route: 042
     Dates: start: 20220217

REACTIONS (7)
  - Diverticulitis [Unknown]
  - Osteonecrosis of jaw [Unknown]
  - Condition aggravated [Unknown]
  - Glossodynia [Unknown]
  - Oral discomfort [Unknown]
  - Exostosis of jaw [Recovered/Resolved]
  - Muscle spasms [Unknown]
